FAERS Safety Report 13849030 (Version 1)
Quarter: 2017Q3

REPORT INFORMATION
  Report Type: Spontaneous
  Country: US (occurrence: US)
  Receive Date: 20170809
  Receipt Date: 20170809
  Transmission Date: 20171127
  Serious: Yes (Death)
  Sender: FDA-Public Use
  Company Number: None

PATIENT
  Age: 75 Year
  Sex: Female

DRUGS (14)
  1. DULOXETINE. [Concomitant]
     Active Substance: DULOXETINE
  2. GABAPENTIN. [Concomitant]
     Active Substance: GABAPENTIN
  3. FENTANYL. [Concomitant]
     Active Substance: FENTANYL
  4. LEVOTHYROXINE. [Concomitant]
     Active Substance: LEVOTHYROXINE
  5. PANTOPRAZOLE [Concomitant]
     Active Substance: PANTOPRAZOLE
  6. APAP [Concomitant]
     Active Substance: ACETAMINOPHEN
  7. HALDOL [Concomitant]
     Active Substance: HALOPERIDOL
  8. TOLTERODINE ER [Concomitant]
  9. ELIQUIS [Concomitant]
     Active Substance: APIXABAN
  10. DIGITEK [Concomitant]
     Active Substance: DIGOXIN
  11. COLACE [Concomitant]
     Active Substance: DOCUSATE SODIUM
  12. VITAMIN D3 [Concomitant]
     Active Substance: CHOLECALCIFEROL
  13. ZOFRAN [Concomitant]
     Active Substance: ONDANSETRON HYDROCHLORIDE
  14. CAPECITABINE 500MG TEVA [Suspect]
     Active Substance: CAPECITABINE
     Indication: BREAST CANCER
     Dosage: 3 QAM AND 4 QPM 14 DAYS, 7 DAYS OFF ORAL
     Route: 048

REACTIONS (1)
  - Death [None]
